FAERS Safety Report 5001490-6 (Version None)
Quarter: 2006Q2

REPORT INFORMATION
  Report Type: 
  Country: None (occurrence: None)
  Receive Date: 20060512
  Receipt Date: 20060406
  Transmission Date: 20061013
  Serious: Yes (Hospitalization, Disabling)
  Sender: FDA-Public Use
  Company Number: US-MERCK-0604USA00936

PATIENT
  Age: 55 Year
  Sex: Female
  Weight: 68 kg

DRUGS (15)
  1. VIOXX [Suspect]
     Indication: ARTHRALGIA
     Route: 048
     Dates: start: 20040201, end: 20041001
  2. POTASSIUM (UNSPECIFIED) [Concomitant]
     Route: 065
  3. NASONEX [Concomitant]
     Route: 065
  4. DIOVAN [Concomitant]
     Route: 065
  5. CLARINEX [Concomitant]
     Route: 065
  6. CARDIZEM [Concomitant]
     Route: 065
  7. PRAVACHOL [Concomitant]
     Route: 065
  8. RANITIDINE [Concomitant]
     Route: 065
  9. ISMO [Concomitant]
     Route: 065
  10. AUGMENTIN '125' [Concomitant]
     Route: 065
  11. DIFLUCAN [Concomitant]
     Route: 065
  12. KLOR-CON [Concomitant]
     Route: 065
  13. SKELAXIN [Concomitant]
     Route: 065
  14. SINGULAIR [Concomitant]
     Route: 065
  15. TEQUIN [Concomitant]
     Route: 065

REACTIONS (1)
  - MYOCARDIAL INFARCTION [None]
